FAERS Safety Report 23858407 (Version 2)
Quarter: 2024Q3

REPORT INFORMATION
  Report Type: Report from Study
  Country: CA (occurrence: CA)
  Receive Date: 20240515
  Receipt Date: 20240820
  Transmission Date: 20241017
  Serious: Yes (Other)
  Sender: ALNYLAM PHARMACEUTICALS
  Company Number: CA-ALNYLAM PHARMACEUTICALS, INC.-ALN-2023-004753

PATIENT

DRUGS (13)
  1. OXLUMO [Suspect]
     Active Substance: LUMASIRAN
     Indication: Primary hyperoxaluria
     Dosage: 0.3 MILLIGRAM/KILOGRAM, MONTHLY (ONCE A MONTH FOR 3 DOSES)
     Route: 058
     Dates: start: 20230324, end: 20230324
  2. OXLUMO [Suspect]
     Active Substance: LUMASIRAN
     Dosage: 294 MILLIGRAM, MONTHLY
     Route: 058
     Dates: start: 20230915, end: 20230915
  3. VITAMIN B6 [Suspect]
     Active Substance: PYRIDOXINE HYDROCHLORIDE
     Indication: Urine oxalate increased
     Dosage: 1000 MILLIGRAM, QD (SHE WAS UP TO 80% ADHERENCE)
     Route: 065
     Dates: start: 201710
  4. CALCIUM CARBONATE [Concomitant]
     Active Substance: CALCIUM CARBONATE
     Indication: Urine oxalate increased
     Dosage: 500 MILLIGRAM
     Route: 065
     Dates: start: 201710
  5. VITAMIN D3 [Concomitant]
     Active Substance: CHOLECALCIFEROL
     Indication: Product used for unknown indication
     Dosage: 1000 INTERNATIONAL UNIT
     Route: 065
     Dates: start: 201710
  6. VITAMIN D3 [Concomitant]
     Active Substance: CHOLECALCIFEROL
     Dosage: 2000 UNITS, QD
     Route: 065
  7. MAGNESIUM OXIDE [Concomitant]
     Active Substance: MAGNESIUM OXIDE
     Indication: Urine magnesium
     Dosage: 420 MILLIGRAM, QD
     Route: 065
     Dates: start: 201710
  8. MAGNESIUM OXIDE [Concomitant]
     Active Substance: MAGNESIUM OXIDE
     Indication: Prophylaxis
  9. FERROUS GLUCONATE [Concomitant]
     Active Substance: FERROUS GLUCONATE
     Indication: Mineral supplementation
     Dosage: 300 MILLIGRAM, QD 4 DAYS PER WEEK
     Route: 065
     Dates: start: 201710
  10. POTASSIUM CITRATE [Concomitant]
     Active Substance: POTASSIUM CITRATE
     Indication: Hypocitraturia
     Dosage: 30-40 MILLIEQUIVALENT PER DAY
     Route: 065
     Dates: start: 201710
  11. POTASSIUM CITRATE [Concomitant]
     Active Substance: POTASSIUM CITRATE
     Indication: Prophylaxis
  12. VITAMIN B12 [Concomitant]
     Active Substance: CYANOCOBALAMIN
     Indication: Vitamin B12 deficiency
     Dosage: 1000 MICROGRAM, QD
     Route: 048
  13. CANDESARTAN [Concomitant]
     Active Substance: CANDESARTAN
     Indication: Hypertension
     Dosage: 2 MILLIGRAM, QD
     Route: 065

REACTIONS (4)
  - Neuropathy peripheral [Unknown]
  - Rash pruritic [Unknown]
  - Hypoaesthesia [Not Recovered/Not Resolved]
  - Overdose [Unknown]

NARRATIVE: CASE EVENT DATE: 20230101
